FAERS Safety Report 15901393 (Version 1)
Quarter: 2019Q1

REPORT INFORMATION
  Report Type: Spontaneous
  Country: US (occurrence: US)
  Receive Date: 20190201
  Receipt Date: 20190201
  Transmission Date: 20190417
  Serious: Yes (Other)
  Sender: FDA-Public Use
  Company Number: None

PATIENT
  Age: 12 Year
  Sex: Male

DRUGS (1)
  1. PEG 3350 [Suspect]
     Active Substance: POLYETHYLENE GLYCOL 3350

REACTIONS (5)
  - Social avoidant behaviour [None]
  - Depression [None]
  - Muscle twitching [None]
  - Vomiting [None]
  - Anxiety [None]
